FAERS Safety Report 7866243-X (Version None)
Quarter: 2011Q4

REPORT INFORMATION
  Report Type: 
  Country: None (occurrence: None)
  Receive Date: 20111028
  Receipt Date: 20110517
  Transmission Date: 20120403
  Serious: No
  Sender: FDA-Public Use
  Company Number: US-GLAXOSMITHKLINE-A0927603A

PATIENT
  Age: 56 Year
  Sex: Female

DRUGS (6)
  1. LORAZEPAM [Concomitant]
  2. PREDNISONE [Concomitant]
  3. CARAFATE [Concomitant]
  4. ADVAIR DISKUS 100/50 [Suspect]
     Indication: CHRONIC OBSTRUCTIVE PULMONARY DISEASE
     Dosage: 1PUFF TWICE PER DAY
     Route: 055
     Dates: start: 20070806
  5. ALBUTEROL [Concomitant]
  6. DUONEB [Concomitant]

REACTIONS (1)
  - CANDIDIASIS [None]
